FAERS Safety Report 14445160 (Version 10)
Quarter: 2020Q1

REPORT INFORMATION
  Report Type: Spontaneous
  Country: US (occurrence: US)
  Receive Date: 20180126
  Receipt Date: 20200323
  Transmission Date: 20200409
  Serious: No
  Sender: FDA-Public Use
  Company Number: US-PFIZER INC-2018033136

PATIENT
  Age: 65 Year
  Sex: Female
  Weight: 69 kg

DRUGS (6)
  1. IBRANCE [Suspect]
     Active Substance: PALBOCICLIB
     Dosage: 125 MG, CYCLIC (STAY OFF FOR 2 WEEKS)
     Route: 048
  2. IBRANCE [Suspect]
     Active Substance: PALBOCICLIB
     Dosage: 350 MG, SINGLE (TOOK TWO OF THE 125 MG PALBOCICLIB WITH THE 100 MG)
  3. IBRANCE [Suspect]
     Active Substance: PALBOCICLIB
     Dosage: 100 MG, UNK
  4. IBRANCE [Suspect]
     Active Substance: PALBOCICLIB
     Dosage: 75 MG, UNK
  5. IBRANCE [Suspect]
     Active Substance: PALBOCICLIB
     Dosage: 75 MG, CYCLIC (21 DAYS THEN 7 DAYS OFF)
     Route: 048
     Dates: start: 201802
  6. IBRANCE [Suspect]
     Active Substance: PALBOCICLIB
     Indication: BREAST CANCER FEMALE
     Dosage: 125 MG, CYCLIC (21 DAYS ON AND SEVEN DAYS OFF)
     Route: 048

REACTIONS (7)
  - Neoplasm progression [Unknown]
  - Incorrect dose administered [Unknown]
  - Burnout syndrome [Unknown]
  - Feeling abnormal [Unknown]
  - Urinary tract infection [Unknown]
  - Product dose omission [Unknown]
  - Blood count abnormal [Recovered/Resolved]
